FAERS Safety Report 14523375 (Version 2)
Quarter: 2018Q1

REPORT INFORMATION
  Report Type: Spontaneous
  Country: US (occurrence: US)
  Receive Date: 20180212
  Receipt Date: 20180307
  Transmission Date: 20180509
  Serious: No
  Sender: FDA-Public Use
  Company Number: US-GLAXOSMITHKLINE-US2018GSK023978

PATIENT
  Age: 55 Year
  Sex: Female
  Weight: 80.27 kg

DRUGS (1)
  1. NUCALA [Suspect]
     Active Substance: MEPOLIZUMAB
     Indication: ASTHMA
     Dosage: 100 MG, SC EVERY 4 WEEKS
     Route: 058
     Dates: start: 201607, end: 201802

REACTIONS (3)
  - Back pain [Recovered/Resolved]
  - Emergency care [Unknown]
  - Muscle spasms [Unknown]

NARRATIVE: CASE EVENT DATE: 20180202
